FAERS Safety Report 4595895-5 (Version None)
Quarter: 2005Q1

REPORT INFORMATION
  Report Type: 
  Country: None (occurrence: None)
  Receive Date: 20050224
  Receipt Date: 20050224
  Transmission Date: 20050727
  Serious: Yes (Hospitalization)
  Sender: FDA-Public Use
  Company Number: None

PATIENT
  Sex: Male

DRUGS (13)
  1. AMIODARONE [Suspect]
     Indication: ARRHYTHMIA
     Dosage: TITRATION  INTRAVENOUS
     Route: 042
     Dates: start: 20040510, end: 20040511
  2. APAP TAB [Concomitant]
  3. ASPIRIN [Concomitant]
  4. CEFAZOLIN [Concomitant]
  5. FAMOTIDINE [Concomitant]
  6. FENTANYL [Concomitant]
  7. FUROSEMIDE [Concomitant]
  8. HEPARIN [Concomitant]
  9. HETASTARCH 6% IN 0.9% SODIUM CHLORIDE IN PLASTIC CONTAINER [Concomitant]
  10. REGULAR INSULIN [Concomitant]
  11. MORPHINE [Concomitant]
  12. OXYCODONE AND ACETAMINOPHEN [Concomitant]
  13. POTASSIUM CHLORIDE [Concomitant]

REACTIONS (1)
  - LUNG INJURY [None]
